FAERS Safety Report 17530213 (Version 1)
Quarter: 2020Q1

REPORT INFORMATION
  Report Type: Spontaneous
  Country: US (occurrence: US)
  Receive Date: 20200312
  Receipt Date: 20200312
  Transmission Date: 20200409
  Serious: No
  Sender: FDA-Public Use
  Company Number: US-TEVA-2020-US-1197200

PATIENT
  Age: 66 Year
  Sex: Male

DRUGS (1)
  1. CLONIDINE. [Suspect]
     Active Substance: CLONIDINE
     Indication: HYPERTENSION
     Dosage: STRENGTH: 0.3 MCG/HR
     Route: 065

REACTIONS (4)
  - Application site pain [Not Recovered/Not Resolved]
  - Therapeutic product effect incomplete [Unknown]
  - Application site vesicles [Not Recovered/Not Resolved]
  - Application site pruritus [Unknown]
